FAERS Safety Report 8764937 (Version 1)
Quarter: 2012Q4

REPORT INFORMATION
  Report Type: 
  Country: US (occurrence: US)
  Receive Date: 20120902
  Receipt Date: 20120902
  Transmission Date: 20130627
  Serious: Yes (Hospitalization)
  Sender: FDA-Public Use
  Company Number: US-MYLANLABS-2012S1017432

PATIENT
  Age: 83 Year
  Sex: Female

DRUGS (4)
  1. KETOCONAZOLE [Suspect]
     Indication: CUSHING^S SYNDROME
     Dosage: 300mg thrice a day
     Route: 048
  2. KETOCONAZOLE [Interacting]
     Indication: CUSHING^S SYNDROME
     Dosage: 300mg every 6 hours
     Route: 048
  3. VERAPAMIL [Interacting]
     Indication: HYPERTENSION
     Dosage: 360mg daily
     Route: 065
  4. POTASSIUM [Concomitant]
     Indication: HYPOKALAEMIA
     Route: 048

REACTIONS (4)
  - Atrioventricular block complete [Recovered/Resolved]
  - Drug interaction [Recovered/Resolved]
  - Hypotension [Recovered/Resolved]
  - Mental status changes [Recovered/Resolved]
